FAERS Safety Report 15744438 (Version 1)
Quarter: 2018Q4

REPORT INFORMATION
  Report Type: Spontaneous
  Country: AT (occurrence: AT)
  Receive Date: 20181220
  Receipt Date: 20181220
  Transmission Date: 20190205
  Serious: Yes (Hospitalization)
  Sender: FDA-Public Use
  Company Number: AT-AMGEN-AUTNI2018179569

PATIENT
  Age: 40 Year
  Sex: Female
  Weight: 60 kg

DRUGS (8)
  1. PARKEMED [Concomitant]
     Active Substance: MEFENAMIC ACID
     Indication: DENTAL FISTULA
     Dosage: UNK
     Route: 065
  2. MEXALEN [Concomitant]
     Active Substance: ACETAMINOPHEN
     Indication: METASTASES TO CENTRAL NERVOUS SYSTEM
     Route: 065
  3. MIRANAX [Concomitant]
     Route: 065
  4. ZOFRAN [Concomitant]
     Active Substance: ONDANSETRON HYDROCHLORIDE
     Route: 065
  5. FORTECORTIN [Concomitant]
     Active Substance: DEXAMETHASONE
     Route: 065
  6. XGEVA [Suspect]
     Active Substance: DENOSUMAB
     Indication: HER-2 POSITIVE BREAST CANCER
     Dosage: 120 MG, UNK
     Route: 058
  7. TRASTUZUMAB. [Suspect]
     Active Substance: TRASTUZUMAB
     Indication: HER-2 POSITIVE BREAST CANCER
     Dosage: 3.6 MG/KG, UNK
     Route: 042
     Dates: start: 20161114
  8. EMEND [Concomitant]
     Active Substance: APREPITANT
     Route: 065

REACTIONS (2)
  - Dental fistula [Recovered/Resolved]
  - Spinal pain [Recovering/Resolving]

NARRATIVE: CASE EVENT DATE: 20181112
